FAERS Safety Report 9887757 (Version 3)
Quarter: 2014Q1

REPORT INFORMATION
  Report Type: Spontaneous
  Country: US (occurrence: None)
  Receive Date: 20140206
  Receipt Date: 20140214
  Transmission Date: 20141002
  Serious: Yes (Hospitalization)
  Sender: FDA-Public Use
  Company Number: 2160529

PATIENT
  Sex: Female

DRUGS (7)
  1. MARCAINE [Suspect]
     Indication: PROCEDURAL PAIN
     Route: 014
     Dates: start: 20140115
  2. MARCAINE [Suspect]
     Indication: PAIN
     Route: 014
     Dates: start: 20140115
  3. LIDOCAINE HCL [Suspect]
     Indication: PROCEDURAL PAIN
     Route: 014
     Dates: start: 20140115
  4. LIDOCAINE HCL [Suspect]
     Indication: PAIN
     Route: 014
     Dates: start: 20140115
  5. KENALOG [Suspect]
     Indication: PROCEDURAL PAIN
     Dates: start: 20140115
  6. KENALOG [Suspect]
     Indication: PAIN
     Dates: start: 20140115
  7. OPTIRAY 320 ULTRA [Concomitant]

REACTIONS (5)
  - Infection [None]
  - Arthritis infective [None]
  - Wrong technique in drug usage process [None]
  - Incorrect product storage [None]
  - Product contamination [None]
